FAERS Safety Report 7417838-9 (Version None)
Quarter: 2011Q2

REPORT INFORMATION
  Report Type: 
  Country: None (occurrence: None)
  Receive Date: 20110415
  Receipt Date: 20110413
  Transmission Date: 20111010
  Serious: Yes (Hospitalization)
  Sender: FDA-Public Use
  Company Number: AU-ABBOTT-11P-008-0709560-00

PATIENT
  Age: 48 Year
  Sex: Male
  Weight: 95 kg

DRUGS (7)
  1. ERYTHROMYCIN BASE [Suspect]
     Indication: PRODUCT USED FOR UNKNOWN INDICATION
     Dates: start: 20100502
  2. FENOFIBRATE [Suspect]
     Indication: XANTHOMATOSIS
  3. PANTOPRAZOLE [Suspect]
     Indication: PRODUCT USED FOR UNKNOWN INDICATION
     Dates: start: 20100502
  4. MEROPENEM [Suspect]
     Indication: PRODUCT USED FOR UNKNOWN INDICATION
     Dates: start: 20100502
  5. CRESTOR [Suspect]
     Indication: PRODUCT USED FOR UNKNOWN INDICATION
  6. NILSTAT [Suspect]
     Indication: PRODUCT USED FOR UNKNOWN INDICATION
     Dates: start: 20100502
  7. PARACETAMOL [Suspect]
     Indication: PRODUCT USED FOR UNKNOWN INDICATION
     Dates: start: 20100502

REACTIONS (6)
  - HYPERTRIGLYCERIDAEMIA [None]
  - RHABDOMYOLYSIS [None]
  - RENAL FAILURE [None]
  - SEPSIS [None]
  - BLOOD CREATINE PHOSPHOKINASE INCREASED [None]
  - PANCREATITIS [None]
